FAERS Safety Report 4977647-7 (Version None)
Quarter: 2006Q2

REPORT INFORMATION
  Report Type: 
  Country: None (occurrence: None)
  Receive Date: 20060420
  Receipt Date: 20051110
  Transmission Date: 20061013
  Serious: No
  Sender: FDA-Public Use
  Company Number: US-GLAXOSMITHKLINE-A0581806A

PATIENT
  Age: 65 Year
  Sex: Female

DRUGS (6)
  1. ESKALITH [Suspect]
     Dosage: 300MG UNKNOWN
     Route: 048
  2. SYNTHROID [Concomitant]
  3. FOSAMAX [Concomitant]
  4. LIPITOR [Concomitant]
  5. ZESTRIL [Concomitant]
  6. CALAN [Concomitant]

REACTIONS (2)
  - DEPRESSION [None]
  - DRUG INEFFECTIVE [None]
